FAERS Safety Report 25154801 (Version 1)
Quarter: 2025Q2

REPORT INFORMATION
  Report Type: Spontaneous
  Country: RS (occurrence: RS)
  Receive Date: 20250403
  Receipt Date: 20250403
  Transmission Date: 20250716
  Serious: Yes (Other)
  Sender: ROCHE
  Company Number: RS-ROCHE-10000244143

PATIENT
  Sex: Female

DRUGS (3)
  1. ACTEMRA [Suspect]
     Active Substance: TOCILIZUMAB
     Indication: Rheumatoid arthritis
     Route: 065
     Dates: start: 201906
  2. METHOTREXATE [Concomitant]
     Active Substance: METHOTREXATE
  3. PRONISON [Concomitant]
     Active Substance: PREDNISONE

REACTIONS (3)
  - Vasculitis [Unknown]
  - Non-small cell lung cancer [Unknown]
  - Coronary artery disease [Unknown]
